FAERS Safety Report 10214707 (Version 1)
Quarter: 2014Q2

REPORT INFORMATION
  Report Type: Spontaneous
  Country: US (occurrence: US)
  Receive Date: 20140603
  Receipt Date: 20140603
  Transmission Date: 20141212
  Serious: No
  Sender: FDA-Public Use
  Company Number: US-SHIRE-US201402614

PATIENT
  Sex: Female

DRUGS (1)
  1. LIALDA [Suspect]
     Indication: CROHN^S DISEASE
     Dosage: 1.2 G, 1X/DAY:QD
     Route: 048

REACTIONS (2)
  - Off label use [Not Recovered/Not Resolved]
  - Dizziness [Unknown]
